FAERS Safety Report 22944048 (Version 2)
Quarter: 2023Q4

REPORT INFORMATION
  Report Type: Spontaneous
  Country: CN (occurrence: CN)
  Receive Date: 20230914
  Receipt Date: 20231009
  Transmission Date: 20240110
  Serious: Yes (Other)
  Sender: FDA-Public Use
  Company Number: CN-PFIZER INC-PV202300154296

PATIENT
  Age: 71 Year
  Sex: Male

DRUGS (11)
  1. NIRMATRELVIR\RITONAVIR [Suspect]
     Active Substance: NIRMATRELVIR\RITONAVIR
     Indication: COVID-19 treatment
     Dosage: UNK
     Route: 065
  2. CRESEMBA [Suspect]
     Active Substance: ISAVUCONAZONIUM SULFATE
     Indication: Anti-infective therapy
     Dosage: UNK
     Route: 065
  3. CRESEMBA [Suspect]
     Active Substance: ISAVUCONAZONIUM SULFATE
     Indication: Antifungal treatment
  4. BIAPENEM [Concomitant]
     Active Substance: BIAPENEM
     Indication: Anti-infective therapy
     Dosage: UNK
  5. IMMUNE GLOBULIN NOS [Concomitant]
     Active Substance: IMMUNE GLOBULIN NOS
     Indication: Therapeutic procedure
     Dosage: UNK
  6. AMPHOTERICIN B [Concomitant]
     Active Substance: AMPHOTERICIN B
     Indication: Anti-infective therapy
     Dosage: UNK
  7. LEVOFLOXACIN [Concomitant]
     Active Substance: LEVOFLOXACIN
     Indication: Bacterial infection
     Dosage: UNK
  8. HERBALS [Concomitant]
     Active Substance: HERBALS
     Indication: Renal disorder
     Dosage: UNK
  9. KAI TONG [(RS)-3 METHYL-2-OXOVALERIANIC ACID CALCIUM;(RS)-3-METHYL-2-O [Concomitant]
     Indication: Renal disorder
     Dosage: UNK
  10. ALBUMIN HUMAN [Concomitant]
     Active Substance: ALBUMIN HUMAN
     Indication: Nutritional supplementation
     Dosage: UNK
  11. ZANUBRUTINIB [Concomitant]
     Active Substance: ZANUBRUTINIB
     Indication: Waldenstrom^s macroglobulinaemia
     Dosage: UNK
     Route: 048

REACTIONS (7)
  - Renal failure [Unknown]
  - Decreased appetite [Unknown]
  - White blood cell count decreased [Unknown]
  - Chest pain [Unknown]
  - Troponin T increased [Unknown]
  - Pyrexia [Unknown]
  - Off label use [Unknown]

NARRATIVE: CASE EVENT DATE: 20230814
